FAERS Safety Report 8294850-1 (Version None)
Quarter: 2012Q2

REPORT INFORMATION
  Report Type: 
  Country: None (occurrence: None)
  Receive Date: 20120418
  Receipt Date: 20120416
  Transmission Date: 20120825
  Serious: No
  Sender: FDA-Public Use
  Company Number: US-PFIZER INC-2012094756

PATIENT
  Sex: Female

DRUGS (2)
  1. CELEBREX [Suspect]
     Dosage: UNK
     Dates: start: 20111021
  2. DETROL LA [Suspect]
     Dosage: UNK
     Dates: start: 20111021

REACTIONS (1)
  - FEELING ABNORMAL [None]
